FAERS Safety Report 19740696 (Version 1)
Quarter: 2021Q3

REPORT INFORMATION
  Report Type: Spontaneous
  Country: US (occurrence: US)
  Receive Date: 20210824
  Receipt Date: 20210824
  Transmission Date: 20211014
  Serious: No
  Sender: FDA-Public Use
  Company Number: US-GW PHARMA-202108USGW04045

PATIENT

DRUGS (1)
  1. EPIDIOLEX [Suspect]
     Active Substance: CANNABIDIOL
     Indication: LENNOX-GASTAUT SYNDROME
     Dosage: 300 MILLIGRAM, BID
     Route: 048

REACTIONS (4)
  - Seizure [Recovered/Resolved]
  - Seizure [Unknown]
  - Cyanosis [Unknown]
  - Seizure [Unknown]

NARRATIVE: CASE EVENT DATE: 2021
